FAERS Safety Report 9881149 (Version 1)
Quarter: 2014Q1

REPORT INFORMATION
  Report Type: Spontaneous
  Country: CA (occurrence: CA)
  Receive Date: 20140207
  Receipt Date: 20140207
  Transmission Date: 20141002
  Serious: Yes (Other)
  Sender: FDA-Public Use
  Company Number: CA-AMGEN-CANSP2014007878

PATIENT
  Sex: Female

DRUGS (1)
  1. PROLIA [Suspect]
     Indication: OSTEOPOROSIS POSTMENOPAUSAL
     Route: 065

REACTIONS (5)
  - Lung infection [Not Recovered/Not Resolved]
  - Immune system disorder [Unknown]
  - Vitamin D decreased [Unknown]
  - Headache [Unknown]
  - Poor quality sleep [Unknown]
